FAERS Safety Report 23389874 (Version 1)
Quarter: 2024Q1

REPORT INFORMATION
  Report Type: Spontaneous
  Country: BR (occurrence: BR)
  Receive Date: 20240111
  Receipt Date: 20240111
  Transmission Date: 20240410
  Serious: Yes (Hospitalization)
  Sender: FDA-Public Use
  Company Number: BR-BoehringerIngelheim-2023-BI-279507

PATIENT
  Age: 25 Year
  Sex: Male

DRUGS (3)
  1. OLODATEROL\TIOTROPIUM [Suspect]
     Active Substance: OLODATEROL\TIOTROPIUM
     Indication: Product used for unknown indication
  2. PREDNISONE [Concomitant]
     Active Substance: PREDNISONE
     Indication: Product used for unknown indication
  3. BUDESONIDE [Concomitant]
     Active Substance: BUDESONIDE
     Indication: Product used for unknown indication
     Dosage: INHALATION

REACTIONS (21)
  - Dyspnoea exertional [Unknown]
  - Cough [Unknown]
  - Wheezing [Unknown]
  - Pyrexia [Unknown]
  - Weight decreased [Unknown]
  - Night sweats [Unknown]
  - Dyspnoea [Unknown]
  - Cough [Unknown]
  - Wheezing [Unknown]
  - Rales [Unknown]
  - Oxygen saturation [Unknown]
  - Bronchiectasis [Unknown]
  - Bronchial wall thickening [Unknown]
  - Bronchiolitis [Unknown]
  - Lymphadenopathy mediastinal [Unknown]
  - Pseudomonas test [Unknown]
  - Bronchial hyperreactivity [Unknown]
  - Chronic obstructive pulmonary disease [Unknown]
  - Spermatozoa progressive motility decreased [Unknown]
  - Semen analysis [Unknown]
  - Dyspnoea [Unknown]
